FAERS Safety Report 24764925 (Version 1)
Quarter: 2024Q4

REPORT INFORMATION
  Report Type: Spontaneous
  Country: ES (occurrence: ES)
  Receive Date: 20241223
  Receipt Date: 20241223
  Transmission Date: 20250114
  Serious: Yes (Life-Threatening)
  Sender: TEVA
  Company Number: None

PATIENT
  Age: 93 Year
  Sex: Male

DRUGS (2)
  1. CIPROFLOXACIN [Suspect]
     Active Substance: CIPROFLOXACIN
     Indication: Cholecystitis acute
     Dosage: CIPROFLOXACIN (2049A)
     Route: 048
     Dates: start: 20241031, end: 20241109
  2. METRONIDAZOLE BENZOATE [Concomitant]
     Active Substance: METRONIDAZOLE BENZOATE
     Indication: Cholecystitis acute
     Dosage: METRONIDAZOLE BENZOATE (1966BE)
     Route: 048
     Dates: start: 20241031, end: 20241109

REACTIONS (3)
  - Depressed mood [Not Recovered/Not Resolved]
  - Insomnia [Not Recovered/Not Resolved]
  - Suicide attempt [Recovered/Resolved]

NARRATIVE: CASE EVENT DATE: 20241111
